FAERS Safety Report 6833782-X (Version None)
Quarter: 2010Q3

REPORT INFORMATION
  Report Type: 
  Country: None (occurrence: None)
  Receive Date: 20100712
  Receipt Date: 20070402
  Transmission Date: 20110219
  Serious: No
  Sender: FDA-Public Use
  Company Number: US-PFIZER INC-2007027500

PATIENT
  Sex: Female
  Weight: 88.45 kg

DRUGS (15)
  1. CHANTIX [Suspect]
     Indication: SMOKING CESSATION THERAPY
     Route: 048
     Dates: start: 20070320
  2. AMBIEN [Concomitant]
     Route: 048
  3. ACETYLSALICYLIC ACID [Concomitant]
     Route: 048
  4. ALL OTHER THERAPEUTIC PRODUCTS [Concomitant]
     Route: 048
  5. COLACE [Concomitant]
     Route: 048
  6. COZAAR [Concomitant]
     Route: 048
  7. FOLTX [Concomitant]
     Route: 048
  8. LORAZEPAM [Concomitant]
     Route: 048
  9. MELATONIN [Concomitant]
     Route: 048
  10. SERZONE [Concomitant]
     Route: 048
  11. VYTORIN [Concomitant]
     Route: 048
  12. WELLBUTRIN XL [Concomitant]
     Indication: DEPRESSION
     Route: 048
  13. LIBRAX [Concomitant]
     Route: 048
  14. RITALIN [Concomitant]
     Route: 048
  15. ULTRAM [Concomitant]
     Route: 048

REACTIONS (4)
  - CONFUSIONAL STATE [None]
  - DISTURBANCE IN ATTENTION [None]
  - FATIGUE [None]
  - MIDDLE INSOMNIA [None]
